FAERS Safety Report 7934925-7 (Version None)
Quarter: 2011Q4

REPORT INFORMATION
  Report Type: 
  Country: None (occurrence: None)
  Receive Date: 20111122
  Receipt Date: 20111012
  Transmission Date: 20120403
  Serious: No
  Sender: FDA-Public Use
  Company Number: US-MYLANLABS-2011S1021410

PATIENT
  Sex: Male

DRUGS (1)
  1. LANSOPRAZOLE [Suspect]

REACTIONS (3)
  - ABDOMINAL DISCOMFORT [None]
  - FLATULENCE [None]
  - ABDOMINAL DISTENSION [None]
